FAERS Safety Report 20386072 (Version 1)
Quarter: 2022Q1

REPORT INFORMATION
  Report Type: Spontaneous
  Country: US (occurrence: US)
  Receive Date: 20220127
  Receipt Date: 20220127
  Transmission Date: 20220423
  Serious: Yes (Hospitalization, Other)
  Sender: FDA-Public Use
  Company Number: US-RECORDATI RARE DISEASE INC.-2022000127

PATIENT
  Age: 9 Year
  Sex: Male
  Weight: 27.4 kg

DRUGS (10)
  1. DACTINOMYCIN [Suspect]
     Active Substance: DACTINOMYCIN
     Indication: Embryonal rhabdomyosarcoma
     Dosage: 0.05 MILLIGRAM/KILOGRAM
     Route: 065
     Dates: start: 20160629, end: 20161122
  2. DACTINOMYCIN [Suspect]
     Active Substance: DACTINOMYCIN
     Dosage: 0.05 MILLIGRAM/KILOGRAM OR PER PROTOCOL ON D1-5 OF C5 AND 8 (CYCLES 5-10)
     Route: 042
     Dates: end: 20161122
  3. CAMPTOSAR [Suspect]
     Active Substance: IRINOTECAN HYDROCHLORIDE
     Indication: Embryonal rhabdomyosarcoma
     Dosage: 50 MILLIGRAM/SQ. METER OR PER PROTOCOL ON D1-5 OF C2,4 (CYCLES 1-4)
     Route: 042
  4. CAMPTOSAR [Suspect]
     Active Substance: IRINOTECAN HYDROCHLORIDE
     Dosage: 50 MILLIGRAM/SQ. METER OR PER PROTOCOL ON D1-5 OF C6,7,9 (CYCLES 5-10)
     Route: 065
  5. TEMSIROLIMUS [Suspect]
     Active Substance: TEMSIROLIMUS
     Indication: Embryonal rhabdomyosarcoma
     Dosage: 15 MILLIGRAM/SQ. METER
     Route: 042
     Dates: start: 20160706
  6. TEMSIROLIMUS [Suspect]
     Active Substance: TEMSIROLIMUS
     Dosage: 15 MILLIGRAM/SQ. METER OR PER PROTOCOL D1,8,15 (CYCLES 5-10)
     Route: 042
     Dates: start: 20160706, end: 20161122
  7. VINCRISTINE SULFATE [Suspect]
     Active Substance: VINCRISTINE SULFATE
     Indication: Embryonal rhabdomyosarcoma
     Dosage: 15 MILLIGRAM/SQ. METER
     Route: 042
  8. VINCRISTINE SULFATE [Suspect]
     Active Substance: VINCRISTINE SULFATE
     Dosage: 15 MILLIGRAM/SQ. METER OR PER PROTOCOL D1,8,15 (CYCLES 5-10)
     Route: 042
     Dates: end: 20161130
  9. CYCLOPHOSPHAMIDE [Suspect]
     Active Substance: CYCLOPHOSPHAMIDE
     Indication: Embryonal rhabdomyosarcoma
     Dosage: 1200 MILLIGRAM/SQ. METER OR PER PROTOCOL ON D1 OF C1 AND 3 (CYCLES 1-4)
     Route: 042
     Dates: start: 20160629, end: 20161122
  10. CYCLOPHOSPHAMIDE [Suspect]
     Active Substance: CYCLOPHOSPHAMIDE
     Dosage: 1200 MILLIGRAM/SQ. METER OR PER PROTOCOL ON D1 OF C5 AND 8 (CYCLES 5-10)
     Route: 042
     Dates: end: 20161122

REACTIONS (3)
  - Pneumonia [Recovered/Resolved]
  - Pneumonitis [Recovered/Resolved]
  - Pyrexia [Recovered/Resolved]

NARRATIVE: CASE EVENT DATE: 20161128
